FAERS Safety Report 5214044-3 (Version None)
Quarter: 2007Q1

REPORT INFORMATION
  Report Type: 
  Country: None (occurrence: None)
  Receive Date: 20070122
  Receipt Date: 20070116
  Transmission Date: 20070707
  Serious: Yes (Hospitalization)
  Sender: FDA-Public Use
  Company Number: US-ELI_LILLY_AND_COMPANY-US200609003609

PATIENT
  Age: 50 Year
  Sex: Female
  Weight: 163.27 kg

DRUGS (4)
  1. ZYPREXA [Suspect]
     Route: 048
     Dates: start: 20040601, end: 20041201
  2. QUETIAPINE FUMARATE [Concomitant]
     Route: 048
     Dates: start: 20040101
  3. CARVEDILOL [Concomitant]
     Route: 048
     Dates: start: 20030101, end: 20040101
  4. FUROSEMIDE [Concomitant]
     Route: 048
     Dates: start: 19700101

REACTIONS (6)
  - BLOOD CHOLESTEROL INCREASED [None]
  - CARDIAC DISORDER [None]
  - CARDIAC FAILURE CONGESTIVE [None]
  - DIABETES MELLITUS [None]
  - HYPERTENSION [None]
  - METABOLIC DISORDER [None]
